FAERS Safety Report 16173486 (Version 1)
Quarter: 2019Q2

REPORT INFORMATION
  Report Type: Spontaneous
  Country: US (occurrence: US)
  Receive Date: 20190408
  Receipt Date: 20190408
  Transmission Date: 20190711
  Serious: Yes (Disabling)
  Sender: FDA-Public Use
  Company Number: None

PATIENT
  Age: 50 Year
  Sex: Female
  Weight: 47.25 kg

DRUGS (9)
  1. MAGNESIUM [Concomitant]
     Active Substance: MAGNESIUM
  2. HYALURONIC ACID [Concomitant]
     Active Substance: HYALURONIC ACID
  3. VITAMIN B12 [Concomitant]
     Active Substance: CYANOCOBALAMIN
  4. VITAMIN E [Concomitant]
     Active Substance: .ALPHA.-TOCOPHEROL
  5. PPQ [Concomitant]
  6. CIPROFLOXACIN. [Suspect]
     Active Substance: CIPROFLOXACIN
     Indication: CELLULITIS
     Dosage: ?          QUANTITY:20 TABLET(S);?
     Route: 048
  7. NAC [Concomitant]
     Active Substance: ACETYLCYSTEINE
  8. VITAMIN D [Concomitant]
     Active Substance: VITAMIN D NOS
  9. VITAMIN C [Concomitant]
     Active Substance: ASCORBIC ACID

REACTIONS (11)
  - Neuralgia [None]
  - Gastrointestinal disorder [None]
  - Anxiety [None]
  - Joint noise [None]
  - Peripheral swelling [None]
  - Burning sensation [None]
  - Alopecia [None]
  - Fatigue [None]
  - Paraesthesia [None]
  - Dry skin [None]
  - Flank pain [None]

NARRATIVE: CASE EVENT DATE: 20181114
